FAERS Safety Report 8963080 (Version 1)
Quarter: 2012Q4

REPORT INFORMATION
  Report Type: 
  Country: CO (occurrence: CO)
  Receive Date: 20121213
  Receipt Date: 20121213
  Transmission Date: 20130627
  Serious: Yes (Other)
  Sender: FDA-Public Use
  Company Number: CO-PFIZER INC-2012311530

PATIENT
  Age: 17 Year
  Sex: Male

DRUGS (4)
  1. GENOTROPIN [Suspect]
     Indication: HYPOTHYROIDISM
     Dosage: 2.4 mg, 1x/day
     Route: 058
     Dates: start: 201210
  2. DESMOPRESSIN [Concomitant]
     Indication: ADRENAL DISORDER
     Dosage: 12 mg, 1x/day
     Route: 065
     Dates: start: 2008
  3. METFORMIN [Concomitant]
     Indication: BLOOD SUGAR ABNORMAL
     Dosage: 850 mg, 2x/day (each 12 hours)
     Dates: start: 2008
  4. PREDNISOLON [Concomitant]
     Indication: HORMONAL IMBALANCE
     Dosage: 15 mg, 2x/day
     Route: 065
     Dates: start: 2008

REACTIONS (3)
  - Strabismus correction [Unknown]
  - Eyelid disorder [Unknown]
  - Off label use [Unknown]
